FAERS Safety Report 10278688 (Version 1)
Quarter: 2014Q3

REPORT INFORMATION
  Report Type: Spontaneous
  Country: GB (occurrence: GB)
  Receive Date: 20140704
  Receipt Date: 20140704
  Transmission Date: 20150326
  Serious: Yes (Life-Threatening)
  Sender: FDA-Public Use
  Company Number: GB-ASTRAZENECA-2014SE47904

PATIENT
  Age: 89 Year
  Sex: Female

DRUGS (17)
  1. AMLODIPINE [Concomitant]
     Active Substance: AMLODIPINE BESYLATE
  2. FUROSEMIDE. [Concomitant]
     Active Substance: FUROSEMIDE
  3. BISOPROLOL [Concomitant]
     Active Substance: BISOPROLOL
  4. NICORANDIL [Concomitant]
     Active Substance: NICORANDIL
  5. OMEPRAZOLE. [Concomitant]
     Active Substance: OMEPRAZOLE
  6. TICAGRELOR [Suspect]
     Active Substance: TICAGRELOR
     Indication: ACUTE MYOCARDIAL INFARCTION
     Route: 048
  7. DOCUSATE [Concomitant]
     Active Substance: DOCUSATE
  8. GLYCERYL TRINITRATE [Concomitant]
     Active Substance: NITROGLYCERIN
  9. EZETIMIBE. [Concomitant]
     Active Substance: EZETIMIBE
  10. ISOSORBIDE MONONITRATE. [Concomitant]
     Active Substance: ISOSORBIDE MONONITRATE
  11. ATORVASTATIN [Concomitant]
     Active Substance: ATORVASTATIN
  12. DOXAZOSIN [Concomitant]
     Active Substance: DOXAZOSIN\DOXAZOSIN MESYLATE
  13. RANOLAZINE [Concomitant]
     Active Substance: RANOLAZINE
  14. PARACETAMOL [Concomitant]
     Active Substance: ACETAMINOPHEN
  15. ASPIRIN. [Suspect]
     Active Substance: ASPIRIN
     Indication: ANGINA PECTORIS
     Route: 065
  16. FONDAPARINUX [Suspect]
     Active Substance: FONDAPARINUX
     Indication: ACUTE MYOCARDIAL INFARCTION
     Route: 065
  17. LACRI-LUBE [Concomitant]

REACTIONS (3)
  - Gastrointestinal haemorrhage [Recovering/Resolving]
  - Melaena [Unknown]
  - Haemoglobin decreased [Unknown]

NARRATIVE: CASE EVENT DATE: 20140614
